FAERS Safety Report 7893873-1 (Version None)
Quarter: 2011Q4

REPORT INFORMATION
  Report Type: 
  Country: None (occurrence: None)
  Receive Date: 20111104
  Receipt Date: 20111028
  Transmission Date: 20120403
  Serious: Yes (Other)
  Sender: FDA-Public Use
  Company Number: PHEH2009US03018

PATIENT
  Sex: Male

DRUGS (18)
  1. LYRICA [Concomitant]
     Dosage: 75 MG, QD
     Route: 048
  2. DECADRON [Concomitant]
  3. LASIX [Concomitant]
  4. WARFARIN SODIUM [Concomitant]
  5. OXYCODONE HCL [Concomitant]
  6. ATENOLOL [Concomitant]
  7. RANITIDINE [Concomitant]
     Dosage: 150 MG, QD
  8. ZOMETA [Suspect]
     Indication: MULTIPLE MYELOMA
  9. ZOMETA [Suspect]
     Indication: HYPERCALCAEMIA OF MALIGNANCY
  10. LISINOPRIL [Concomitant]
  11. AMBIEN [Concomitant]
  12. PENICILLIN ^GRUNENTHAL^ [Concomitant]
  13. KLOR-CON [Concomitant]
  14. ARANESP [Concomitant]
  15. TRIAMCINOLONE ACETONIDE [Concomitant]
  16. RADIOTHERAPY [Concomitant]
  17. REVLIMID [Concomitant]
  18. PANTOPRAZOLE [Concomitant]
     Dosage: 40 MG, QD
     Route: 048

REACTIONS (68)
  - PYREXIA [None]
  - CHRONIC SINUSITIS [None]
  - INJURY [None]
  - PAIN IN EXTREMITY [None]
  - PRIMARY SEQUESTRUM [None]
  - PULMONARY HYPERTENSION [None]
  - AORTIC VALVE INCOMPETENCE [None]
  - DIVERTICULUM INTESTINAL [None]
  - PHYSICAL DISABILITY [None]
  - MUSCLE SPASMS [None]
  - DYSPNOEA EXERTIONAL [None]
  - SENSORY LOSS [None]
  - OROPHARYNGEAL PAIN [None]
  - CARDIOMEGALY [None]
  - CHEST PAIN [None]
  - BONE PAIN [None]
  - CARDIOMYOPATHY [None]
  - TRICUSPID VALVE INCOMPETENCE [None]
  - FLUID OVERLOAD [None]
  - BRADYCARDIA [None]
  - SCIATICA [None]
  - SPINAL OSTEOARTHRITIS [None]
  - SCOLIOSIS [None]
  - CATARACT [None]
  - HYPERTENSION [None]
  - ERYTHEMA [None]
  - NEUROPATHY PERIPHERAL [None]
  - OSTEOPENIA [None]
  - ATAXIA [None]
  - OSTEOARTHRITIS [None]
  - TRANSIENT ISCHAEMIC ATTACK [None]
  - OSTEONECROSIS OF JAW [None]
  - INFECTION [None]
  - CHRONIC OBSTRUCTIVE PULMONARY DISEASE [None]
  - PLEURAL EFFUSION [None]
  - NEOPLASM MALIGNANT [None]
  - COLONIC POLYP [None]
  - EXPOSED BONE IN JAW [None]
  - LEFT VENTRICULAR HYPERTROPHY [None]
  - CHEST DISCOMFORT [None]
  - DEFORMITY [None]
  - EMOTIONAL DISTRESS [None]
  - PANCYTOPENIA [None]
  - SPINAL COMPRESSION FRACTURE [None]
  - CONJUNCTIVAL HAEMORRHAGE [None]
  - DYSPHAGIA [None]
  - CARDIAC FAILURE CONGESTIVE [None]
  - ARTERIOSCLEROSIS [None]
  - PAIN [None]
  - ANXIETY [None]
  - ANAEMIA [None]
  - HAEMOPTYSIS [None]
  - INTERVERTEBRAL DISC DEGENERATION [None]
  - OSTEITIS [None]
  - MALIGNANT MELANOMA [None]
  - RIB FRACTURE [None]
  - MITRAL VALVE INCOMPETENCE [None]
  - HYPOKINESIA [None]
  - UPPER RESPIRATORY TRACT INFECTION [None]
  - HYPOAESTHESIA [None]
  - INSOMNIA [None]
  - RECTAL ULCER [None]
  - FATIGUE [None]
  - OSTEOLYSIS [None]
  - ARTHRALGIA [None]
  - GENITAL HERPES [None]
  - HAEMATOCHEZIA [None]
  - IRRITABLE BOWEL SYNDROME [None]
